FAERS Safety Report 11073339 (Version 1)
Quarter: 2015Q2

REPORT INFORMATION
  Report Type: Spontaneous
  Country: IN (occurrence: IN)
  Receive Date: 20150428
  Receipt Date: 20150428
  Transmission Date: 20150821
  Serious: Yes (Death, Other)
  Sender: FDA-Public Use
  Company Number: IN-009507513-1504IND022263

PATIENT
  Sex: Male
  Weight: 65 kg

DRUGS (1)
  1. JANUMET [Suspect]
     Active Substance: METFORMIN HYDROCHLORIDE\SITAGLIPTIN PHOSPHATE
     Indication: DIABETES MELLITUS
     Dosage: STRENGTH DOSE 50/500 (UNITS NOT REPORTED). 1 DF, QD
     Route: 048

REACTIONS (2)
  - Myocardial infarction [Fatal]
  - Inappropriate schedule of drug administration [Unknown]
